FAERS Safety Report 23073378 (Version 4)
Quarter: 2024Q1

REPORT INFORMATION
  Report Type: Spontaneous
  Country: GB (occurrence: GB)
  Receive Date: 20231017
  Receipt Date: 20240105
  Transmission Date: 20240410
  Serious: Yes (Other)
  Sender: FDA-Public Use
  Company Number: GB-CLINIGEN-GB-CLI-2023-031133

PATIENT
  Age: 45 Year
  Sex: Female
  Weight: 63.8 kg

DRUGS (73)
  1. ALDESLEUKIN [Suspect]
     Active Substance: ALDESLEUKIN
     Indication: Neoplasm
     Dosage: 39.6 UNK, BID
     Route: 065
     Dates: start: 20230913, end: 20230915
  2. CYCLOPHOSPHAMIDE [Suspect]
     Active Substance: CYCLOPHOSPHAMIDE
     Indication: Neoplasm
     Dosage: 4044 MILLIGRAM, QD ONCE
     Route: 050
     Dates: start: 20230905, end: 20230909
  3. CYCLOPHOSPHAMIDE [Suspect]
     Active Substance: CYCLOPHOSPHAMIDE
     Dosage: 4044 MILLIGRAM, QD ONCE
     Route: 050
     Dates: start: 20230905, end: 20230906
  4. FLUDARABINE [Suspect]
     Active Substance: FLUDARABINE PHOSPHATE
     Indication: Neoplasm
     Dosage: 43 MILLIGRAM, QD
     Route: 050
     Dates: start: 20230910, end: 20230911
  5. FLUDARABINE [Suspect]
     Active Substance: FLUDARABINE PHOSPHATE
     Dosage: 43 MILLIGRAM, QD
     Route: 050
     Dates: start: 20230907, end: 20230911
  6. LIFILEUCEL [Suspect]
     Active Substance: LIFILEUCEL
     Indication: Neoplasm
     Dosage: 1 X 10^9 X 150 X10^9 AT ONCE, 3 BAGS; ;
     Route: 050
     Dates: start: 20230912, end: 20230912
  7. PEMBROLIZUMAB [Suspect]
     Active Substance: PEMBROLIZUMAB
     Indication: Neoplasm
     Dosage: 400 MILLIGRAM, ONCE IN 6 WEEKS;
     Route: 050
     Dates: start: 20230816
  8. PEMBROLIZUMAB [Suspect]
     Active Substance: PEMBROLIZUMAB
     Dosage: 400 MILLIGRAM;
     Route: 065
     Dates: start: 20231025
  9. PEMBROLIZUMAB [Suspect]
     Active Substance: PEMBROLIZUMAB
     Dosage: UNK; ;
     Route: 065
     Dates: start: 20231215
  10. PROLEUKIN [Suspect]
     Active Substance: ALDESLEUKIN
     Indication: Neoplasm
     Dosage: 39.6 MILION UNITS, BID;
     Route: 050
     Dates: start: 20230913, end: 20230915
  11. ADCAL [Concomitant]
     Indication: Vitamin supplementation
     Dosage: 1 DOSAGE FORM, BID
     Route: 050
     Dates: start: 20230907
  12. ACYCLOVIR [Concomitant]
     Active Substance: ACYCLOVIR
     Indication: Antiviral prophylaxis
     Dosage: UNK, TID
     Route: 050
     Dates: start: 20230905
  13. AMIKACIN [Concomitant]
     Active Substance: AMIKACIN
     Indication: Sepsis
     Dosage: 15 MILLIGRAM/KILOGRAM, ONLY ONCE;
     Route: 050
     Dates: start: 20230914, end: 20230914
  14. BENZYDAMINE [Concomitant]
     Active Substance: BENZYDAMINE
     Indication: Oropharyngeal pain
     Dosage: SWISH + SPIT, PRN; AS NECESSARY;
     Route: 065
     Dates: start: 20230909
  15. BENZYDAMINE [Concomitant]
     Active Substance: BENZYDAMINE
     Indication: Oropharyngeal pain
  16. BETAMETHASONE VALERATE [Concomitant]
     Active Substance: BETAMETHASONE VALERATE
     Indication: Rash
     Dosage: UNK, QD;
     Route: 050
     Dates: start: 20230919
  17. BETNOVATE [Concomitant]
     Active Substance: BETAMETHASONE
     Dosage: UNK, PRN; AS NECESSARY;
     Route: 050
     Dates: start: 20230920
  18. BETNOVATE [Concomitant]
     Active Substance: BETAMETHASONE
     Indication: Rash
     Dosage: TWICE A DAYS, AS PER NEED; AS NECESSARY;
     Route: 050
     Dates: start: 20230914, end: 20230919
  19. CALCIUM CARBONATE [Concomitant]
     Active Substance: CALCIUM CARBONATE
     Indication: Vitamin supplementation
     Dosage: 2 DF, BID
     Route: 050
     Dates: start: 20230907
  20. CALCIUM CHLORIDE [Concomitant]
     Active Substance: CALCIUM CHLORIDE
     Indication: Fluid replacement
     Dosage: 1000 MILLILITER, CONTINUOUS INFUSION;
     Route: 065
     Dates: start: 20230915, end: 20230915
  21. CALCIUM CHLORIDE [Concomitant]
     Active Substance: CALCIUM CHLORIDE
     Dosage: 1000 ML,  CONTINUOUS INFUSION;
     Route: 050
     Dates: start: 20230918, end: 20230919
  22. CALCIUM CHLORIDE [Concomitant]
     Active Substance: CALCIUM CHLORIDE
     Dosage: 250 ML, ONCE ONLY; ;
     Route: 050
     Dates: start: 20230914, end: 20230914
  23. CAPSAICIN [Concomitant]
     Active Substance: CAPSAICIN
     Indication: Rash
     Dosage: SACHET, PRN; AS NECESSARY
     Route: 050
     Dates: start: 20230916
  24. CHLORPHENIRAMINE MALEATE [Concomitant]
     Active Substance: CHLORPHENIRAMINE MALEATE
     Dosage: 10 MG, PRN, INJECTION; AS NECESSARY
     Route: 050
     Dates: start: 20230912
  25. CHLORPHENIRAMINE MALEATE [Concomitant]
     Active Substance: CHLORPHENIRAMINE MALEATE
     Dosage: 10 MG, PRN, INJECTION; AS NECESSARY
     Route: 050
     Dates: start: 20230912
  26. CHLORPHENIRAMINE MALEATE [Concomitant]
     Active Substance: CHLORPHENIRAMINE MALEATE
     Dosage: 10 MG, PRN, INJECTION; AS NECESSARY
     Route: 050
     Dates: start: 20230912
  27. CHLORPHENIRAMINE MALEATE [Concomitant]
     Active Substance: CHLORPHENIRAMINE MALEATE
     Dosage: 10 MG, PRN, INJECTION; AS NECESSARY
     Route: 061
     Dates: start: 20230912
  28. CHLORPHENIRAMINE MALEATE [Concomitant]
     Active Substance: CHLORPHENIRAMINE MALEATE
     Dosage: 4 MG, PRN, TABLET; AS NECESSARY
     Route: 050
     Dates: start: 20230917, end: 20230917
  29. CHLORPHENIRAMINE MALEATE [Concomitant]
     Active Substance: CHLORPHENIRAMINE MALEATE
     Indication: Hypersensitivity
     Dosage: 5 MG
     Route: 050
     Dates: start: 20230916, end: 20230917
  30. CLOTRIMAZOLE [Concomitant]
     Active Substance: CLOTRIMAZOLE
     Indication: Rash
     Dosage: BID;
     Route: 050
     Dates: start: 20230917
  31. COTRIMOXAZOLE [Concomitant]
     Active Substance: SULFAMETHOXAZOLE\TRIMETHOPRIM
     Indication: Antibiotic prophylaxis
     Dosage: 480 MILLIGRAM, TWICE A DAY ON MON, WED, FRI
     Route: 050
     Dates: start: 20230906
  32. COTRIMOXAZOLE [Concomitant]
     Active Substance: SULFAMETHOXAZOLE\TRIMETHOPRIM
     Indication: Antibiotic prophylaxis
  33. ISOPROPYL MYRISTATE\MINERAL OIL [Concomitant]
     Active Substance: ISOPROPYL MYRISTATE\MINERAL OIL
     Indication: Rash
     Dosage: UNK, PRN; AS NECESSARY;
     Route: 050
     Dates: start: 20230919
  34. FAMOTIDINE [Concomitant]
     Active Substance: FAMOTIDINE
     Indication: Reflux gastritis
     Dosage: 20 MILLIGRAM, BID
     Route: 050
     Dates: start: 20230909
  35. FILGRASTIM [Concomitant]
     Active Substance: FILGRASTIM
     Indication: Neutrophil count decreased
     Dosage: 300 MICROGRAM, QD
     Route: 050
     Dates: start: 20230914, end: 20230915
  36. FLUCONAZOLE [Concomitant]
     Active Substance: FLUCONAZOLE
     Indication: Antiviral prophylaxis
     Dosage: 200 MILLIGRAM, QD
     Route: 050
     Dates: start: 20230915
  37. FLUCONAZOLE [Concomitant]
     Active Substance: FLUCONAZOLE
     Dosage: 200 MILLIGRAM, QD
     Route: 050
     Dates: start: 20230915
  38. FLUCONAZOLE [Concomitant]
     Active Substance: FLUCONAZOLE
     Dosage: 200 MILLIGRAM, QD
     Route: 050
     Dates: start: 20230915
  39. CALCIUM CHLORIDE\POTASSIUM CHLORIDE\SODIUM CHLORIDE\SODIUM LACTATE [Concomitant]
     Active Substance: CALCIUM CHLORIDE\POTASSIUM CHLORIDE\SODIUM CHLORIDE\SODIUM LACTATE
     Indication: Fluid replacement
     Dosage: 1000 MILLILITER, CONTINUOUS INFUSION;
     Route: 065
     Dates: start: 20230915, end: 20230915
  40. CALCIUM CHLORIDE\POTASSIUM CHLORIDE\SODIUM CHLORIDE\SODIUM LACTATE [Concomitant]
     Active Substance: CALCIUM CHLORIDE\POTASSIUM CHLORIDE\SODIUM CHLORIDE\SODIUM LACTATE
     Dosage: 1000 ML,  CONTINUOUS INFUSION;
     Route: 050
     Dates: start: 20230918, end: 20230919
  41. CALCIUM CHLORIDE\POTASSIUM CHLORIDE\SODIUM CHLORIDE\SODIUM LACTATE [Concomitant]
     Active Substance: CALCIUM CHLORIDE\POTASSIUM CHLORIDE\SODIUM CHLORIDE\SODIUM LACTATE
     Dosage: 250 ML, ONCE ONLY;
     Route: 050
     Dates: start: 20230914, end: 20230914
  42. LEVOMEPROMAZINE [Concomitant]
     Active Substance: LEVOMEPROMAZINE
     Indication: Nausea
     Dosage: 3.125 MG, PRN; AS NECESSARY
     Route: 050
     Dates: start: 20230906
  43. LIGHT LIQUID PARAFFIN [Concomitant]
     Indication: Rash
     Dosage: FOR SHOWERING; AS NECESSARY;
     Route: 050
  44. POLYETHYLENE GLYCOLS [Concomitant]
     Active Substance: POLYETHYLENE GLYCOLS
     Indication: Constipation
     Dosage: 1 SACHET EVERY 12H PER NEED; AS NECESSARY;
     Route: 050
     Dates: start: 20230911
  45. MAGNESIUM SULFATE [Concomitant]
     Active Substance: MAGNESIUM SULFATE\MAGNESIUM SULFATE HEPTAHYDRATE
     Indication: Fluid replacement
     Dosage: 20 MMOL; ;
     Route: 050
     Dates: start: 20230914, end: 20230914
  46. MEDIDERM [Concomitant]
     Indication: Rash
     Dosage: SACHET, PRN; AS NECESSARY
     Route: 050
     Dates: start: 20230916
  47. MENTHOL [Concomitant]
     Active Substance: MENTHOL
     Indication: Rash
     Dosage: EVERY 6 HOURS, PRN; AS NECESSARY;
     Route: 050
     Dates: start: 20230915
  48. MENTHOL [Concomitant]
     Active Substance: MENTHOL
     Dosage: SACHET, PRN; AS NECESSARY;
     Route: 050
     Dates: start: 20230916
  49. METHYL SALICYLATE [Concomitant]
     Active Substance: METHYL SALICYLATE
     Indication: Rash
     Dosage: SACHET, PRN; AS NECESSARY;
     Route: 050
     Dates: start: 20230916
  50. SODIUM CHLORIDE [Concomitant]
     Active Substance: SODIUM CHLORIDE
     Indication: Fluid replacement
     Dosage: 1000 ML AT ONCE;
     Route: 050
     Dates: start: 20230913, end: 20230913
  51. ONDANSETRON [Concomitant]
     Active Substance: ONDANSETRON
     Indication: Nausea
     Dosage: 8 MG, Q8H
     Route: 050
     Dates: start: 20230908, end: 20230912
  52. ONDANSETRON [Concomitant]
     Active Substance: ONDANSETRON
     Dosage: 8 MG, PRN; AS NECESSARY
     Route: 050
     Dates: start: 20230912, end: 20230915
  53. ACETAMINOPHEN [Concomitant]
     Active Substance: ACETAMINOPHEN
     Dosage: 1 G, PRN (EVERY 6 HOURS; AS NECESSARY)
     Route: 050
     Dates: start: 20230914
  54. ACETAMINOPHEN [Concomitant]
     Active Substance: ACETAMINOPHEN
     Dosage: 1 GRAM, PRN EVERY 6 HOURS; AS NECESSARY
     Route: 050
     Dates: start: 20230914
  55. ACETAMINOPHEN [Concomitant]
     Active Substance: ACETAMINOPHEN
     Indication: Headache
     Dosage: 1000 MG PRN EVERY 6 HOURS; AS NECESSARY
     Route: 050
     Dates: start: 20230906, end: 20230914
  56. MEPERIDINE [Concomitant]
     Active Substance: MEPERIDINE
     Indication: Chills
     Dosage: 25-50 MG EVERY 4 HOURS IF NEEDED; AS NECESSARY;
     Route: 050
     Dates: start: 20230913
  57. MEPERIDINE [Concomitant]
     Active Substance: MEPERIDINE
     Indication: Chills
  58. PIPERACILLIN AND TAZOBACTAM [Concomitant]
     Active Substance: PIPERACILLIN SODIUM\TAZOBACTAM SODIUM
     Indication: Sepsis
     Dosage: 4.5 GRAM, Q6H
     Route: 050
     Dates: start: 20230914, end: 20230919
  59. POTASSIUM CHLORIDE [Concomitant]
     Active Substance: POTASSIUM CHLORIDE
     Dosage: 1000 ML AT ONCE;
     Route: 065
     Dates: start: 20230912, end: 20230912
  60. POTASSIUM CHLORIDE [Concomitant]
     Active Substance: POTASSIUM CHLORIDE
     Dosage: 1000 ML,ONCE OVER 6 HOURS; ;
     Route: 065
     Dates: start: 20230914, end: 20230914
  61. POTASSIUM CHLORIDE [Concomitant]
     Active Substance: POTASSIUM CHLORIDE
     Dosage: 1000 MILLILITER, CONTINUOUS INFUSION;
     Route: 065
     Dates: start: 20230915, end: 20230915
  62. POTASSIUM CHLORIDE [Concomitant]
     Active Substance: POTASSIUM CHLORIDE
     Indication: Fluid replacement
     Dosage: 1000 ML,  CONTINUOUS INFUSION;
     Route: 050
     Dates: start: 20230918, end: 20230919
  63. POTASSIUM CHLORIDE [Concomitant]
     Active Substance: POTASSIUM CHLORIDE
     Dosage: 1000 ML AT ONCE OVER 6 HOURS; ;
     Route: 050
     Dates: start: 20230914, end: 20230914
  64. QV [Concomitant]
     Indication: Rash
     Dosage: FOR SHOWERING; AS NECESSARY;
     Route: 050
  65. SUCRALFATE [Concomitant]
     Active Substance: SUCRALFATE
     Indication: Reflux gastritis
     Dosage: 1 GRAM, PRN EVERY 6 HOURS, ORAL SUSPENSION; AS NECESSARY
     Route: 050
     Dates: start: 20230911
  66. POTASSIUM BICARBONATE\POTASSIUM CHLORIDE [Concomitant]
     Active Substance: POTASSIUM BICARBONATE\POTASSIUM CHLORIDE
     Indication: Blood potassium decreased
     Dosage: 2 DF, BID
     Route: 050
     Dates: start: 20230914, end: 20230914
  67. DISODIUM HYDROGEN CITRATE [Concomitant]
     Active Substance: DISODIUM HYDROGEN CITRATE
     Indication: Central venous catheterisation
     Dosage: 10000 UNITS, AS NEEDED, VIA CENTRAL VENOUS ACCESS DEVICES; ;
     Route: 065
     Dates: start: 20230912
  68. SODIUM LACTATE [Concomitant]
     Active Substance: SODIUM LACTATE
     Dosage: 1000 MILLILITER, CONTINUOUS INFUSION
     Route: 065
     Dates: start: 20230915, end: 20230915
  69. SODIUM LACTATE [Concomitant]
     Active Substance: SODIUM LACTATE
     Indication: Fluid replacement
     Dosage: 1000 ML,  CONTINUOUS INFUSION;
     Route: 050
     Dates: start: 20230918, end: 20230919
  70. SODIUM LACTATE [Concomitant]
     Active Substance: SODIUM LACTATE
     Dosage: 250 ML, ONCE ONLY
     Route: 050
     Dates: start: 20230914, end: 20230914
  71. TINZAPARIN [Concomitant]
     Active Substance: TINZAPARIN
     Indication: Prophylaxis
     Dosage: 4500 UNITS, QD;
     Route: 050
     Dates: start: 20230918
  72. TAUROLIDINE [Concomitant]
     Active Substance: TAUROLIDINE
     Indication: Central venous catheterisation
     Dosage: 10000 UNITS, AS NEEDED, VIA CENTRAL VENOUS ACCESS DEVICES; ;
     Route: 065
     Dates: start: 20230912
  73. ZOPICLONE [Concomitant]
     Active Substance: ZOPICLONE
     Indication: Insomnia
     Dosage: 3.75 MILLIGRAM, PRN AT NIGHT; AS NECESSARY
     Route: 050
     Dates: start: 20230917, end: 20230918

REACTIONS (1)
  - Iridocyclitis [Recovering/Resolving]

NARRATIVE: CASE EVENT DATE: 20230919
